FAERS Safety Report 20770223 (Version 2)
Quarter: 2022Q2

REPORT INFORMATION
  Report Type: Report from Study
  Country: DE (occurrence: DE)
  Receive Date: 20220429
  Receipt Date: 20220613
  Transmission Date: 20220721
  Serious: Yes (Life-Threatening, Hospitalization)
  Sender: FDA-Public Use
  Company Number: DE-ELI_LILLY_AND_COMPANY-DE202204011367

PATIENT
  Age: 58 Year
  Sex: Male
  Weight: 84 kg

DRUGS (2)
  1. RAMUCIRUMAB [Suspect]
     Active Substance: RAMUCIRUMAB
     Indication: Gastrointestinal adenocarcinoma
     Dosage: 690 MG, UNKNOWN
     Route: 065
     Dates: start: 20211207, end: 20220420
  2. PACLITAXEL [Concomitant]
     Active Substance: PACLITAXEL
     Indication: Gastrointestinal adenocarcinoma
     Dosage: 168 MG, UNKNOWN
     Route: 065
     Dates: start: 20211207, end: 20220420

REACTIONS (1)
  - Duodenal perforation [Recovered/Resolved with Sequelae]

NARRATIVE: CASE EVENT DATE: 20220422
